FAERS Safety Report 15254684 (Version 1)
Quarter: 2018Q3

REPORT INFORMATION
  Report Type: Spontaneous
  Country: US (occurrence: US)
  Receive Date: 20180808
  Receipt Date: 20180808
  Transmission Date: 20181010
  Serious: No
  Sender: FDA-Public Use
  Company Number: US-SA-2018SA215438

PATIENT
  Age: 66 Year
  Sex: Male

DRUGS (7)
  1. WELCHOL [Suspect]
     Active Substance: COLESEVELAM HYDROCHLORIDE
     Indication: HYPERLIPIDAEMIA
     Dosage: 3.75 G
     Route: 048
     Dates: start: 2016
  2. WELCHOL [Suspect]
     Active Substance: COLESEVELAM HYDROCHLORIDE
     Indication: HYPERLIPIDAEMIA
     Dosage: 1875 MG, BID
     Route: 048
  3. METFORMIN [Concomitant]
     Active Substance: METFORMIN HYDROCHLORIDE
  4. VICTOZA [Concomitant]
     Active Substance: LIRAGLUTIDE
  5. METOPROLOL. [Concomitant]
     Active Substance: METOPROLOL
  6. VALSARTAN. [Concomitant]
     Active Substance: VALSARTAN
  7. SPIRONOLACTONE. [Concomitant]
     Active Substance: SPIRONOLACTONE

REACTIONS (2)
  - Memory impairment [Not Recovered/Not Resolved]
  - Blood triglycerides increased [Not Recovered/Not Resolved]
